FAERS Safety Report 13261595 (Version 1)
Quarter: 2017Q1

REPORT INFORMATION
  Report Type: Spontaneous
  Country: PL (occurrence: PL)
  Receive Date: 20170222
  Receipt Date: 20170222
  Transmission Date: 20170428
  Serious: Yes (Hospitalization, Other)
  Sender: FDA-Public Use
  Company Number: PL-MYLANLABS-16X-129-1258255-00

PATIENT

DRUGS (4)
  1. LIPANTHYL 200MG [Suspect]
     Active Substance: FENOFIBRATE
     Indication: PRODUCT USED FOR UNKNOWN INDICATION
     Dosage: UNK
     Route: 065
  2. LIPANTHYL SUPRA [Suspect]
     Active Substance: FENOFIBRATE
     Indication: BLOOD TRIGLYCERIDES INCREASED
  3. LIPANTHYL 267M [Suspect]
     Active Substance: FENOFIBRATE
     Indication: PRODUCT USED FOR UNKNOWN INDICATION
     Dosage: UNK
     Route: 065
  4. LIPANTHYL SUPRA [Suspect]
     Active Substance: FENOFIBRATE
     Indication: BLOOD CHOLESTEROL INCREASED
     Dosage: UNK
     Route: 065

REACTIONS (18)
  - Monoparesis [Recovering/Resolving]
  - Urinary tract inflammation [Recovering/Resolving]
  - Renal disorder [Recovered/Resolved]
  - Gait disturbance [Recovering/Resolving]
  - Left ventricular hypertrophy [Unknown]
  - Atrioventricular block first degree [Unknown]
  - Liver disorder [Recovered/Resolved]
  - Abdominal pain upper [Recovering/Resolving]
  - Muscle spasms [Unknown]
  - Gallbladder disorder [Recovering/Resolving]
  - Diabetes mellitus [Recovering/Resolving]
  - Bone pain [Unknown]
  - Teeth brittle [Recovered/Resolved]
  - Mobility decreased [Recovered/Resolved]
  - Myalgia [Unknown]
  - Muscle injury [Unknown]
  - Thyroid disorder [Recovering/Resolving]
  - Pancreatic disorder [Recovering/Resolving]
